FAERS Safety Report 22260548 (Version 1)
Quarter: 2023Q2

REPORT INFORMATION
  Report Type: Spontaneous
  Country: US (occurrence: US)
  Receive Date: 20230427
  Receipt Date: 20230427
  Transmission Date: 20230722
  Serious: Yes (Hospitalization, Other)
  Sender: FDA-Public Use
  Company Number: US-002147023-NVSC2023US092105

PATIENT
  Sex: Female

DRUGS (6)
  1. RECLAST [Suspect]
     Active Substance: ZOLEDRONIC ACID
     Indication: Product used for unknown indication
     Dosage: 1 DOSAGE FORM
     Route: 065
  2. LASIX [Concomitant]
     Active Substance: FUROSEMIDE
     Indication: Product used for unknown indication
     Dosage: UNK
     Route: 065
  3. WELLBUTRIN [Concomitant]
     Active Substance: BUPROPION HYDROCHLORIDE
     Indication: Product used for unknown indication
     Dosage: UNK
     Route: 065
  4. VITAMIN A [Concomitant]
     Active Substance: VITAMIN A
     Indication: Product used for unknown indication
     Dosage: UNK
     Route: 065
  5. VITAMIN C [Concomitant]
     Active Substance: ASCORBIC ACID
     Indication: Product used for unknown indication
     Dosage: UNK
     Route: 065
  6. ZINC [Concomitant]
     Active Substance: ZINC
     Indication: Product used for unknown indication
     Dosage: UNK
     Route: 065

REACTIONS (34)
  - Oesophageal candidiasis [Unknown]
  - Ill-defined disorder [Unknown]
  - Impaired gastric emptying [Unknown]
  - Rheumatoid arthritis [Unknown]
  - Arrhythmia [Unknown]
  - Kidney infection [Unknown]
  - Pain [Unknown]
  - Illness [Unknown]
  - Arthralgia [Unknown]
  - Dehydration [Unknown]
  - Oropharyngeal discomfort [Unknown]
  - Nervous system disorder [Unknown]
  - Visual impairment [Unknown]
  - Hypoaesthesia [Unknown]
  - Alopecia [Unknown]
  - Abdominal discomfort [Unknown]
  - Ear disorder [Unknown]
  - Gallbladder disorder [Not Recovered/Not Resolved]
  - Heart rate increased [Unknown]
  - Exostosis [Unknown]
  - Arthropathy [Unknown]
  - Depression [Unknown]
  - Anxiety [Unknown]
  - Renal disorder [Unknown]
  - Finger deformity [Unknown]
  - Foot deformity [Unknown]
  - Ligament sprain [Unknown]
  - Gait inability [Unknown]
  - Stomatitis [Unknown]
  - Palpitations [Unknown]
  - Eye disorder [Unknown]
  - Jaw disorder [Unknown]
  - Myalgia [Unknown]
  - Pyrexia [Unknown]
